FAERS Safety Report 8964200 (Version 2)
Quarter: 2014Q2

REPORT INFORMATION
  Report Type: Spontaneous
  Country: US (occurrence: US)
  Receive Date: 20121214
  Receipt Date: 20131024
  Transmission Date: 20141212
  Serious: Yes (Hospitalization)
  Sender: FDA-Public Use
  Company Number: US-PFIZER INC-2012311488

PATIENT
  Age: 26 Year
  Sex: Female

DRUGS (3)
  1. SOLU-MEDROL [Suspect]
  2. REBIF [Suspect]
     Dosage: UNK
  3. REBIF [Suspect]
     Dosage: 44 MCG, 3 IN 1 WEEK
     Route: 058
     Dates: start: 20121105

REACTIONS (4)
  - Bradycardia [Recovering/Resolving]
  - Hypertension [Recovering/Resolving]
  - Vision blurred [Recovering/Resolving]
  - Malaise [Recovering/Resolving]
